FAERS Safety Report 6312177-1 (Version None)
Quarter: 2009Q3

REPORT INFORMATION
  Report Type: 
  Country: None (occurrence: None)
  Receive Date: 20090817
  Receipt Date: 20090708
  Transmission Date: 20100115
  Serious: Yes (Hospitalization, Other)
  Sender: FDA-Public Use
  Company Number: US-TEVA-205954USA

PATIENT
  Sex: Female

DRUGS (1)
  1. JOLESSA TABLET 0.15/0.03MG [Suspect]

REACTIONS (1)
  - CONVULSION [None]
